FAERS Safety Report 12828975 (Version 1)
Quarter: 2016Q4

REPORT INFORMATION
  Report Type: Spontaneous
  Country: US (occurrence: US)
  Receive Date: 20161007
  Receipt Date: 20161007
  Transmission Date: 20170207
  Serious: No
  Sender: FDA-Public Use
  Company Number: US-SA-2016SA035059

PATIENT
  Age: 57 Year
  Sex: Female

DRUGS (13)
  1. CALCIUM [Concomitant]
     Active Substance: CALCIUM
  2. OMEPRAZOLE. [Concomitant]
     Active Substance: OMEPRAZOLE
  3. CITRUCEL [Concomitant]
     Active Substance: METHYLCELLULOSE (4000 MPA.S)
  4. BUPROPION. [Concomitant]
     Active Substance: BUPROPION
  5. VITAMIN D3 [Concomitant]
     Active Substance: CHOLECALCIFEROL
  6. BACLOFEN. [Concomitant]
     Active Substance: BACLOFEN
  7. VITAMIN B6 [Concomitant]
     Active Substance: PYRIDOXINE HYDROCHLORIDE
  8. PROAIR HFA [Concomitant]
     Active Substance: ALBUTEROL SULFATE
  9. VITAMIN D [Concomitant]
     Active Substance: CHOLECALCIFEROL
  10. AMFETAMINE [Concomitant]
     Active Substance: AMPHETAMINE
  11. AUBAGIO [Suspect]
     Active Substance: TERIFLUNOMIDE
     Indication: MULTIPLE SCLEROSIS
     Route: 048
     Dates: end: 20160311
  12. TOPIRAMATE. [Concomitant]
     Active Substance: TOPIRAMATE
  13. FISH OIL [Concomitant]
     Active Substance: FISH OIL

REACTIONS (6)
  - Paraesthesia [Unknown]
  - Dandruff [Unknown]
  - Pain in extremity [Unknown]
  - Alopecia [Unknown]
  - Dry skin [Unknown]
  - Hyperaesthesia [Unknown]
